FAERS Safety Report 23511728 (Version 1)
Quarter: 2024Q1

REPORT INFORMATION
  Report Type: Spontaneous
  Country: US (occurrence: US)
  Receive Date: 20240212
  Receipt Date: 20240212
  Transmission Date: 20240409
  Serious: No
  Sender: FDA-Public Use
  Company Number: US-OPELLA-2024OHG003848

PATIENT
  Sex: Male
  Weight: 91.63 kg

DRUGS (7)
  1. WHITE PETROLATUM [Suspect]
     Active Substance: PETROLATUM
  2. XYZAL [Suspect]
     Active Substance: LEVOCETIRIZINE DIHYDROCHLORIDE
  3. NEXIUM [Suspect]
     Active Substance: ESOMEPRAZOLE MAGNESIUM
  4. METHOCARBAMOL [Suspect]
     Active Substance: METHOCARBAMOL
  5. AMLODIPINE BESYLATE [Suspect]
     Active Substance: AMLODIPINE BESYLATE
  6. GABAPENTIN [Suspect]
     Active Substance: GABAPENTIN
  7. DUPIXENT [Suspect]
     Active Substance: DUPILUMAB
     Indication: Dermatitis atopic
     Route: 058

REACTIONS (1)
  - Dermatitis atopic [Unknown]
